FAERS Safety Report 12462023 (Version 2)
Quarter: 2016Q2

REPORT INFORMATION
  Report Type: Other
  Country: JP (occurrence: JP)
  Receive Date: 20160613
  Receipt Date: 20160622
  Transmission Date: 20160815
  Serious: Yes (Death, Other)
  Sender: FDA-Public Use
  Company Number: JP-PURDUE-USA-2016-0131472

PATIENT
  Sex: Male
  Weight: 65.5 kg

DRUGS (2)
  1. TRAMADOL AND ACETAMINOPHEN [Concomitant]
     Active Substance: ACETAMINOPHEN\TRAMADOL HYDROCHLORIDE
     Indication: PRODUCT USED FOR UNKNOWN INDICATION
     Route: 048
  2. ZOLPIDEM TARTRATE. [Suspect]
     Active Substance: ZOLPIDEM TARTRATE
     Indication: INSOMNIA
     Route: 048

REACTIONS (2)
  - Abnormal behaviour [Unknown]
  - Drowning [Fatal]
